FAERS Safety Report 17705710 (Version 2)
Quarter: 2020Q3

REPORT INFORMATION
  Report Type: Spontaneous
  Country: DE (occurrence: DE)
  Receive Date: 20200424
  Receipt Date: 20200826
  Transmission Date: 20201102
  Serious: Yes (Other)
  Sender: FDA-Public Use
  Company Number: DE-MYLANLABS-2020M1039761

PATIENT
  Age: 77 Year
  Sex: Male
  Weight: 89 kg

DRUGS (2)
  1. VALSARTAN TAD [Suspect]
     Active Substance: VALSARTAN
     Indication: PRODUCT USED FOR UNKNOWN INDICATION
     Dosage: 160 MILLIGRAM
  2. VALSARTAN DURA [Suspect]
     Active Substance: VALSARTAN
     Indication: PRODUCT USED FOR UNKNOWN INDICATION
     Dosage: 160 MILLIGRAM, QD, (ONCE DAILY)
     Route: 048
     Dates: start: 2015

REACTIONS (3)
  - Mental impairment [Unknown]
  - Quality of life decreased [Unknown]
  - Fear of disease [Unknown]
